FAERS Safety Report 9882816 (Version 1)
Quarter: 2014Q1

REPORT INFORMATION
  Report Type: Spontaneous
  Country: US (occurrence: US)
  Receive Date: 20140207
  Receipt Date: 20140207
  Transmission Date: 20141002
  Serious: Yes (Other)
  Sender: FDA-Public Use
  Company Number: US-RB-063154-14

PATIENT
  Age: 29 Year
  Sex: Male

DRUGS (3)
  1. SUBOXONE FILM [Suspect]
     Indication: DRUG DEPENDENCE
     Dosage: SUBOXONE FILM; DOSING DETAILS UNKNOWN
     Route: 060
     Dates: start: 2012
  2. MARIJUANA [Suspect]
     Indication: SUBSTANCE USE
     Dosage: DOSING DETAILS UNKNOWN
     Route: 055
  3. CRYSTAL METHAMPHETAMINE [Suspect]
     Indication: SUBSTANCE USE
     Dosage: TOOK ONCE; FURTHER DOSING DETAILS UNKNOWN
     Route: 065
     Dates: start: 201309, end: 201309

REACTIONS (6)
  - Drug abuse [Recovered/Resolved]
  - Euphoric mood [Recovered/Resolved]
  - Face injury [Recovered/Resolved]
  - Fall [Recovered/Resolved]
  - Concussion [Recovered/Resolved]
  - Hand fracture [Recovered/Resolved]
